FAERS Safety Report 6731283-0 (Version None)
Quarter: 2010Q2

REPORT INFORMATION
  Report Type: 
  Country: None (occurrence: None)
  Receive Date: 20100518
  Receipt Date: 20100514
  Transmission Date: 20101027
  Serious: Yes (Death)
  Sender: FDA-Public Use
  Company Number: US-GILEAD-2010-0029225

PATIENT
  Sex: Female

DRUGS (10)
  1. LETAIRIS [Suspect]
     Indication: PULMONARY ARTERIAL HYPERTENSION
     Route: 048
     Dates: start: 20091208
  2. REVATIO [Concomitant]
  3. LASIX [Concomitant]
  4. LISINOPRIL [Concomitant]
  5. ACETAMINOPHEN [Concomitant]
  6. LIPITOR [Concomitant]
  7. CLONAZEPAM [Concomitant]
  8. POTASSIUM CHLORIDE [Concomitant]
  9. ZANAFLEX [Concomitant]
  10. HYDROCODONE [Concomitant]

REACTIONS (1)
  - DEATH [None]
